FAERS Safety Report 8463395 (Version 3)
Quarter: 2012Q4

REPORT INFORMATION
  Report Type: 
  Country: CA (occurrence: CA)
  Receive Date: 20120316
  Receipt Date: 20121004
  Transmission Date: 20130627
  Serious: Yes (Hospitalization, Other)
  Sender: FDA-Public Use
  Company Number: CA-ELI_LILLY_AND_COMPANY-CA201203001567

PATIENT
  Sex: Male

DRUGS (9)
  1. GEMZAR [Suspect]
     Indication: NON-SMALL CELL LUNG CANCER METASTATIC
     Dosage: 1750 mg, UNK
     Dates: start: 20120119, end: 20120306
  2. CARBOPLATIN [Concomitant]
     Indication: SMALL CELL LUNG CANCER METASTATIC
  3. ADVAIR [Concomitant]
  4. FLOMAX                             /00889901/ [Concomitant]
  5. ATORVASTATIN [Concomitant]
  6. TYLENOL W/CODEINE NO. 3 [Concomitant]
  7. LORAZEPAM [Concomitant]
  8. DOCUSATE SODIUM [Concomitant]
  9. SENOKOT [Concomitant]

REACTIONS (4)
  - Atrial flutter [Recovered/Resolved with Sequelae]
  - Left ventricular dysfunction [Recovered/Resolved]
  - Tachycardia [Recovered/Resolved]
  - Hypotension [Unknown]
